FAERS Safety Report 17392251 (Version 1)
Quarter: 2020Q1

REPORT INFORMATION
  Report Type: Spontaneous
  Country: JP (occurrence: JP)
  Receive Date: 20200207
  Receipt Date: 20200207
  Transmission Date: 20200409
  Serious: Yes (Other)
  Sender: FDA-Public Use
  Company Number: NVSC2020JP016160

PATIENT
  Age: 68 Year
  Sex: Male

DRUGS (4)
  1. PAZOPANIB [Suspect]
     Active Substance: PAZOPANIB
     Dosage: 200 MG QD
     Route: 065
  2. GEMCITABINE. [Suspect]
     Active Substance: GEMCITABINE
     Indication: DEDIFFERENTIATED LIPOSARCOMA
     Dosage: UNK
     Route: 065
  3. PAZOPANIB [Suspect]
     Active Substance: PAZOPANIB
     Indication: NEOPLASM MALIGNANT
     Dosage: 600 MG, QD
     Route: 065
  4. DOCETAXEL. [Suspect]
     Active Substance: DOCETAXEL
     Indication: DEDIFFERENTIATED LIPOSARCOMA
     Route: 065

REACTIONS (4)
  - Malignant neoplasm progression [Unknown]
  - Dedifferentiated liposarcoma [Unknown]
  - Transaminases increased [Unknown]
  - Product use in unapproved indication [Unknown]
